FAERS Safety Report 9848418 (Version 1)
Quarter: 2013Q4

REPORT INFORMATION
  Report Type: Spontaneous
  Country: US (occurrence: None)
  Receive Date: 20131226
  Receipt Date: 20131226
  Transmission Date: 20140711
  Serious: Yes (Other)
  Sender: FDA-Public Use
  Company Number: PHEH2013US015660

PATIENT
  Age: 73 Year
  Sex: Female

DRUGS (7)
  1. ARCAPTA [Suspect]
     Dates: start: 20130712
  2. IPRATROPIUM (IPRATROPIUM) [Concomitant]
  3. NORVASC (AMLODIPINE BESILATE) [Concomitant]
  4. LORATADINE (LORATADINE) [Concomitant]
  5. CELEXA (CITALOPRAM HYDROBROMIDE) [Concomitant]
  6. ZANTAC (RANITIDINE HYDROCHLORIDE) [Concomitant]
  7. OCTOVIT (FERROUS SULFATE, MINERALS NOS, VITAMINS NOS) [Concomitant]

REACTIONS (1)
  - Rash [None]
